FAERS Safety Report 11191728 (Version 1)
Quarter: 2015Q2

REPORT INFORMATION
  Report Type: Report from Study
  Country: US (occurrence: None)
  Receive Date: 20150603
  Receipt Date: 20150603
  Transmission Date: 20150821
  Serious: No
  Sender: FDA-Public Use
  Company Number: 2015TASUS000728

PATIENT
  Age: 54 Year
  Sex: Male
  Weight: 68 kg

DRUGS (10)
  1. LAMICTAL [Concomitant]
     Active Substance: LAMOTRIGINE
  2. DIAZEPAM. [Concomitant]
     Active Substance: DIAZEPAM
  3. LEVOTHROID (LEVOTHYROXINE SODIUM) [Concomitant]
  4. METHOTREXATE LPF (METHOTREXATE SODIUM) [Concomitant]
  5. NORCO (HYDROCODONE BITARTRATE, PARACETAMOL) [Concomitant]
  6. HETLIOZ [Suspect]
     Active Substance: TASIMELTEON
     Indication: CIRCADIAN RHYTHM SLEEP DISORDER
     Dates: start: 20150219, end: 2015
  7. AMITRIPTYLINE HCL (AMITRIPTYLINE HYDROCHLORIDE) [Concomitant]
  8. MELOXICAM. [Concomitant]
     Active Substance: MELOXICAM
  9. OMEPRAZOLE. [Concomitant]
     Active Substance: OMEPRAZOLE
  10. PRAMIPEXOLE DIHYDROCHLORIDE. [Concomitant]
     Active Substance: PRAMIPEXOLE DIHYDROCHLORIDE

REACTIONS (2)
  - Insomnia [None]
  - Middle insomnia [None]

NARRATIVE: CASE EVENT DATE: 201502
